FAERS Safety Report 23486108 (Version 3)
Quarter: 2024Q1

REPORT INFORMATION
  Report Type: Spontaneous
  Country: US (occurrence: US)
  Receive Date: 20240206
  Receipt Date: 20240322
  Transmission Date: 20240410
  Serious: Yes (Hospitalization, Other)
  Sender: FDA-Public Use
  Company Number: US-BEH-2024168122

PATIENT
  Age: 9 Year
  Sex: Female

DRUGS (4)
  1. HIZENTRA [Suspect]
     Active Substance: HUMAN IMMUNOGLOBULIN G
     Indication: Hypogammaglobulinaemia
     Dosage: 14 GRAM, QOW (EVERY 2 WEEKS)
     Route: 058
     Dates: start: 202401, end: 20240124
  2. HIZENTRA [Suspect]
     Active Substance: HUMAN IMMUNOGLOBULIN G
     Indication: Selective IgA immunodeficiency
     Dosage: UNK
     Route: 065
     Dates: start: 20240210
  3. SYMBICORT [Concomitant]
     Active Substance: BUDESONIDE\FORMOTEROL FUMARATE DIHYDRATE
     Dosage: 160 MILLIGRAM, BID
  4. AZITHROMYCIN [Concomitant]
     Active Substance: AZITHROMYCIN
     Dosage: 500 MILLIGRAM, TIW
     Route: 048

REACTIONS (5)
  - Respiratory distress [Unknown]
  - Bronchial hyperreactivity [Unknown]
  - Bronchospasm [Unknown]
  - Rhinovirus infection [Unknown]
  - Asthma [Unknown]

NARRATIVE: CASE EVENT DATE: 20240101
